FAERS Safety Report 18411775 (Version 1)
Quarter: 2020Q4

REPORT INFORMATION
  Report Type: Spontaneous
  Country: US (occurrence: US)
  Receive Date: 20201021
  Receipt Date: 20201021
  Transmission Date: 20210114
  Serious: Yes (Hospitalization)
  Sender: FDA-Public Use
  Company Number: US-BAYER-2020-223716

PATIENT
  Age: 56 Year
  Sex: Female

DRUGS (2)
  1. BIVALIRUDIN. [Interacting]
     Active Substance: BIVALIRUDIN
  2. GENUINE BAYER ASPIRIN [Suspect]
     Active Substance: ASPIRIN
     Indication: PROPHYLAXIS
     Dosage: UNK UNK, BID

REACTIONS (3)
  - Haemorrhagic transformation stroke [None]
  - Cerebral haemorrhage [None]
  - Labelled drug-drug interaction medication error [None]
